FAERS Safety Report 8592835-9 (Version None)
Quarter: 2012Q3

REPORT INFORMATION
  Report Type: 
  Country: None (occurrence: None)
  Receive Date: 20120814
  Receipt Date: 20120808
  Transmission Date: 20120928
  Serious: Yes (Other)
  Sender: FDA-Public Use
  Company Number: JP-ROCHE-1097718

PATIENT
  Age: 41 Year
  Sex: Male

DRUGS (2)
  1. TACROLIMUS [Concomitant]
     Indication: PROPHYLAXIS AGAINST TRANSPLANT REJECTION
     Dosage: TROUGH LEVEL 5-6NG/ML
     Route: 065
  2. CELLCEPT [Suspect]
     Indication: PROPHYLAXIS AGAINST TRANSPLANT REJECTION
     Dosage: 500-1000MG
     Route: 048

REACTIONS (1)
  - HEPATIC FUNCTION ABNORMAL [None]
